FAERS Safety Report 8232895-8 (Version None)
Quarter: 2012Q1

REPORT INFORMATION
  Report Type: 
  Country: None (occurrence: None)
  Receive Date: 20120324
  Receipt Date: 20120314
  Transmission Date: 20120608
  Serious: Yes (Other)
  Sender: FDA-Public Use
  Company Number: AR-AMGEN-ARGSP2012015581

PATIENT
  Age: 71 Year
  Sex: Female

DRUGS (4)
  1. METICORTEN [Concomitant]
     Dosage: UNK
  2. CELEBREX [Concomitant]
     Dosage: UNK
  3. ENBREL [Suspect]
     Indication: RHEUMATOID ARTHRITIS
     Dosage: 50 MG, WEEKLY
     Route: 058
     Dates: start: 20100802
  4. OMEPRAZOLE [Concomitant]
     Dosage: UNK

REACTIONS (4)
  - PHARYNGITIS [None]
  - CATARACT [None]
  - EYE DISORDER [None]
  - ULCERATIVE KERATITIS [None]
